FAERS Safety Report 19003467 (Version 1)
Quarter: 2021Q1

REPORT INFORMATION
  Report Type: Spontaneous
  Country: NO (occurrence: NO)
  Receive Date: 20210312
  Receipt Date: 20210312
  Transmission Date: 20210420
  Serious: Yes (Hospitalization, Other)
  Sender: FDA-Public Use
  Company Number: NVSC2021NO051999

PATIENT
  Age: 70 Year
  Sex: Female

DRUGS (8)
  1. IRBESARTAN SANDOZ [Concomitant]
     Active Substance: IRBESARTAN
     Indication: PRODUCT USED FOR UNKNOWN INDICATION
     Dosage: 150 MG, QD (150 MG X 1 AND C09CA04 ? IRBESARTAN)
     Route: 048
  2. ACETYLSALISYLSYRE ACTAVIS [Concomitant]
     Active Substance: ASPIRIN
     Indication: CARDIOVASCULAR EVENT PROPHYLAXIS
     Dosage: 75 MG, QD (75 MG X 1, B01AC06 ? ACETYLSALISYLSYRE )
     Route: 048
  3. CALCIGRAN FORTE [Concomitant]
     Active Substance: CALCIUM CARBONATE\CHOLECALCIFEROL
     Indication: OSTEOPOROSIS
     Dosage: 1 DF, QD (1000/800  MG/IE X 1, A12AX ? KALSIUM, KOMBINASJONER MED VITAMIN D OG/ELLER ANDRE MIDLER )
     Route: 048
  4. ALENDRONAT [Suspect]
     Active Substance: ALENDRONATE SODIUM
     Indication: OSTEOPOROSIS
     Dosage: 70 MG, QW (1 PER WEEK,M05BA04 ? ALENDRONSYRE)
     Route: 048
     Dates: start: 20111121, end: 20210127
  5. STESOLID [Concomitant]
     Active Substance: DIAZEPAM
     Indication: ANXIETY
     Dosage: 5 MG, Q8H (5 MG UP TO X 3 WHEN NEEDED, N05BA01 )
     Route: 048
  6. PARALGIN FORTE [Concomitant]
     Indication: PAIN
     Dosage: UNK UNK, PRN (AS NEEDED, N02AJ06 ? KODEIN OG PARACETAMOL)
     Route: 048
  7. TEGRETOL [Suspect]
     Active Substance: CARBAMAZEPINE
     Indication: EPILEPSY
     Dosage: 100 MG, QD (100 MG X 1 (SHE HAS EARLIER USED 200 MG X 3)
     Route: 048
     Dates: start: 2000
  8. LANSOPRAZOL PENSA [Concomitant]
     Indication: GASTROOESOPHAGEAL REFLUX DISEASE
     Dosage: 30 MG, PRN (A02BC03 ? LANSOPRAZOL)
     Route: 048

REACTIONS (2)
  - Femur fracture [Unknown]
  - Atypical femur fracture [Unknown]

NARRATIVE: CASE EVENT DATE: 202102
